FAERS Safety Report 9369926 (Version 1)
Quarter: 2013Q2

REPORT INFORMATION
  Report Type: Spontaneous
  Country: US (occurrence: None)
  Receive Date: 20130625
  Receipt Date: 20130625
  Transmission Date: 20140414
  Serious: Yes (Other)
  Sender: FDA-Public Use
  Company Number: None

PATIENT
  Age: 38 Year
  Sex: Female
  Weight: 47.63 kg

DRUGS (1)
  1. AZITHROMYCIN [Suspect]
     Indication: BRONCHITIS
     Route: 048
     Dates: start: 20130620, end: 20130623

REACTIONS (6)
  - Cough [None]
  - Respiratory tract congestion [None]
  - Bronchitis [None]
  - Pyrexia [None]
  - Extrasystoles [None]
  - Palpitations [None]
